FAERS Safety Report 10539019 (Version 2)
Quarter: 2014Q4

REPORT INFORMATION
  Report Type: Spontaneous
  Country: ES (occurrence: ES)
  Receive Date: 20141023
  Receipt Date: 20141111
  Transmission Date: 20150529
  Serious: Yes (Other)
  Sender: FDA-Public Use
  Company Number: ES-JNJFOC-20141011621

PATIENT
  Age: 67 Year
  Sex: Female

DRUGS (2)
  1. METHOTREXATE [Concomitant]
     Active Substance: METHOTREXATE
     Route: 065
  2. INFLIXIMAB, RECOMBINANT [Suspect]
     Active Substance: INFLIXIMAB
     Indication: BEHCET^S SYNDROME
     Dosage: LOADING DOSE OF 5MG/KG AT 0,2,6 FOLLOWED BY A MAINTENANCE THERAPY OF ONCE EVERY 8 WEEKS
     Route: 042

REACTIONS (2)
  - Uveitis [Not Recovered/Not Resolved]
  - Product use issue [Unknown]
